FAERS Safety Report 8918571 (Version 4)
Quarter: 2013Q3

REPORT INFORMATION
  Report Type: Report from Study
  Country: JP (occurrence: JP)
  Receive Date: 20121120
  Receipt Date: 20130909
  Transmission Date: 20140515
  Serious: Yes (Life-Threatening)
  Sender: FDA-Public Use
  Company Number: JP-VERTEX PHARMACEUTICAL INC.-2012-024871

PATIENT
  Age: 68 Year
  Sex: Female

DRUGS (32)
  1. VX-950 (TELAPREVIR) [Suspect]
     Indication: CHRONIC HEPATITIS C
     Dosage: 1500 MG, QD
     Route: 048
     Dates: start: 20120510, end: 20120620
  2. VX-950 (TELAPREVIR) [Suspect]
     Dosage: 1250 MG, QD
     Route: 048
     Dates: start: 20120621, end: 20120628
  3. VX-950 (TELAPREVIR) [Suspect]
     Dosage: 1000 MG, QD
     Route: 048
     Dates: start: 20120629, end: 20120803
  4. RIBAVIRIN [Suspect]
     Indication: CHRONIC HEPATITIS C
     Dosage: 800 MG, QD
     Route: 048
     Dates: start: 20120510, end: 20120524
  5. RIBAVIRIN [Suspect]
     Dosage: 600 MG, QD
     Route: 048
     Dates: start: 20120525, end: 20120817
  6. RIBAVIRIN [Suspect]
     Dosage: 400 MG, QD
     Route: 048
     Dates: start: 20120818, end: 20120824
  7. PEGINTRON [Suspect]
     Indication: CHRONIC HEPATITIS C
     Dosage: 1.5 ?G/KG, WEEK
     Route: 058
     Dates: start: 20120510, end: 20120621
  8. PEGINTRON [Suspect]
     Dosage: 1.2 ?G/KG, WEEK
     Route: 058
     Dates: start: 20120628, end: 20120810
  9. PEGINTRON [Suspect]
     Dosage: 1.0 ?G/KG, WEEK
     Dates: start: 20120817, end: 20120817
  10. GLIMICRON [Concomitant]
     Dosage: 20 MG, QD
     Route: 048
     Dates: end: 20120524
  11. ONON [Concomitant]
     Dosage: 450 MG, QD
     Route: 048
     Dates: end: 20120524
  12. ALOSITOL [Concomitant]
     Dosage: 100 MG, QD
     Route: 048
     Dates: start: 20120510, end: 20120830
  13. GLACTIV [Concomitant]
     Dosage: 50 MG, QD
     Route: 048
     Dates: start: 20120524, end: 20120902
  14. METGLUCO [Concomitant]
     Dosage: 750 MG, QD
     Route: 048
     Dates: start: 20120606, end: 20120803
  15. METGLUCO [Concomitant]
     Dosage: 500 MG, QD
     Route: 048
     Dates: start: 20120804, end: 20120902
  16. GASMOTIN [Concomitant]
     Dosage: 10 MG, QD
     Route: 048
     Dates: end: 20120830
  17. OMEPRAL [Concomitant]
     Dosage: 10 MG, QD
     Route: 048
  18. ENSURE [Concomitant]
     Dosage: 250 ML, QD
     Route: 048
     Dates: end: 20120830
  19. DIOVAN [Concomitant]
     Dosage: 40 MG, QD
     Route: 048
     Dates: start: 20120831
  20. ADALAT L [Concomitant]
     Dosage: 10 MG, QD
     Route: 048
     Dates: start: 20120902, end: 20120906
  21. ADALAT L [Concomitant]
     Dosage: 20 MG, QD
     Route: 048
     Dates: start: 20120907
  22. NOVORAPID [Concomitant]
     Dosage: 12 DF, QD
     Route: 058
     Dates: start: 20120902, end: 20120904
  23. NOVORAPID [Concomitant]
     Dosage: 34 DF, QD
     Route: 058
     Dates: start: 20120905, end: 20120905
  24. NOVORAPID [Concomitant]
     Dosage: 40 DF, QD
     Route: 058
     Dates: start: 20120906, end: 20120917
  25. NOVORAPID [Concomitant]
     Dosage: 36 DF, QD
     Route: 058
     Dates: start: 20120918, end: 20120930
  26. NOVORAPID [Concomitant]
     Dosage: 30 DF, QD
     Route: 058
     Dates: start: 20121001, end: 20121028
  27. NOVORAPID [Concomitant]
     Dosage: 24 DF, QD
     Route: 058
     Dates: start: 20121029, end: 20130301
  28. NOVORAPID [Concomitant]
     Dosage: 18 DF, QD
     Route: 058
     Dates: start: 20130302, end: 20130329
  29. NOVORAPID [Concomitant]
     Dosage: 15 DF, QD
     Route: 058
     Dates: start: 20130330, end: 20130809
  30. NOVORAPID [Concomitant]
     Dosage: 9 DF, QD
     Route: 058
     Dates: start: 20130810
  31. BAKTAR [Concomitant]
     Dosage: 1 DF, QD
     Route: 048
     Dates: start: 20120916
  32. FOSAMAC [Concomitant]
     Dosage: 35 MG, QW
     Route: 048
     Dates: start: 20120917

REACTIONS (1)
  - Interstitial lung disease [Recovered/Resolved]
